FAERS Safety Report 8066917-4 (Version None)
Quarter: 2012Q1

REPORT INFORMATION
  Report Type: 
  Country: None (occurrence: None)
  Receive Date: 20120124
  Receipt Date: 20120117
  Transmission Date: 20120608
  Serious: Yes (Other)
  Sender: FDA-Public Use
  Company Number: PHHY2011JP105612

PATIENT
  Age: 29 Year
  Sex: Female

DRUGS (2)
  1. LABETALOL HCL [Suspect]
     Indication: ESSENTIAL HYPERTENSION
     Dosage: 150 MG, UNK
     Route: 048
  2. ADALAT [Suspect]
     Indication: ESSENTIAL HYPERTENSION
     Dosage: 40 MG, UNK
     Route: 048

REACTIONS (5)
  - INDUCED LABOUR [None]
  - POSTPARTUM HAEMORRHAGE [None]
  - DELIVERY [None]
  - MATERNAL EXPOSURE DURING PREGNANCY [None]
  - UTERINE HYPOTONUS [None]
